FAERS Safety Report 9559693 (Version 2)
Quarter: 2014Q1

REPORT INFORMATION
  Report Type: Spontaneous
  Country: US (occurrence: None)
  Receive Date: 20130906
  Receipt Date: 20131205
  Transmission Date: 20141002
  Serious: Yes (Other)
  Sender: FDA-Public Use
  Company Number: 163-POMAL-13080776

PATIENT
  Age: 73 Year
  Sex: Female

DRUGS (2)
  1. POMALYST (POMALIDOMIDE) (4 MILLIGRAM, CAPSULES) [Suspect]
     Indication: PLASMA CELL MYELOMA
     Dosage: 4 MG, 14 IN 14 D, PO
     Route: 048
     Dates: start: 20130829
  2. ALKERAN (MELPHALAN) [Concomitant]

REACTIONS (9)
  - Pain [None]
  - Asthenia [None]
  - Sluggishness [None]
  - Dizziness [None]
  - Somnolence [None]
  - Swelling [None]
  - Nervousness [None]
  - Abdominal distension [None]
  - Dyspnoea [None]
